FAERS Safety Report 16974391 (Version 2)
Quarter: 2019Q4

REPORT INFORMATION
  Report Type: Spontaneous
  Country: US (occurrence: US)
  Receive Date: 20191030
  Receipt Date: 20191106
  Transmission Date: 20200122
  Serious: Yes (Life-Threatening, Hospitalization)
  Sender: FDA-Public Use
  Company Number: US-PFIZER INC-2019465595

PATIENT
  Age: 15 Year
  Sex: Female

DRUGS (1)
  1. AMLODIPINE BESILATE [Suspect]
     Active Substance: AMLODIPINE BESYLATE
     Indication: HEADACHE
     Dosage: 30 MG, UNK
     Route: 048

REACTIONS (6)
  - Accidental overdose [Unknown]
  - Multiple organ dysfunction syndrome [Unknown]
  - Hypersensitivity [Unknown]
  - Circulatory collapse [Unknown]
  - Lactic acidosis [Unknown]
  - Vasoplegia syndrome [Unknown]
